FAERS Safety Report 6592886-X (Version None)
Quarter: 2010Q1

REPORT INFORMATION
  Report Type: 
  Country: None (occurrence: None)
  Receive Date: 20100222
  Receipt Date: 20100215
  Transmission Date: 20100710
  Serious: Yes (Hospitalization)
  Sender: FDA-Public Use
  Company Number: US-ELI_LILLY_AND_COMPANY-US201002003906

PATIENT
  Sex: Female
  Weight: 47 kg

DRUGS (10)
  1. PEMETREXED [Suspect]
     Indication: NON-SMALL CELL LUNG CANCER
     Dosage: 400 MG/M2, OTHER
     Route: 042
     Dates: start: 20100129
  2. GEMCITABINE HCL [Suspect]
     Indication: NON-SMALL CELL LUNG CANCER
     Dosage: 1200 MG/M2, OTHER
     Route: 042
     Dates: start: 20100129
  3. BEVACIZUMAB [Suspect]
     Indication: NON-SMALL CELL LUNG CANCER
     Dosage: 10 MG/KG, OTHER
     Route: 042
     Dates: start: 20100129
  4. MORPHINE SULFATE [Concomitant]
  5. DILAUDID [Concomitant]
  6. FOLIC ACID [Concomitant]
  7. DOCUSATE [Concomitant]
  8. XANAX [Concomitant]
  9. CIPRO [Concomitant]
  10. VITAMIN B-12 [Concomitant]
     Dates: end: 20100122

REACTIONS (1)
  - PULMONARY EMBOLISM [None]
